FAERS Safety Report 5440550-2 (Version None)
Quarter: 2007Q3

REPORT INFORMATION
  Report Type: 
  Country: None (occurrence: None)
  Receive Date: 20070831
  Receipt Date: 20070822
  Transmission Date: 20080115
  Serious: Yes (Death, Hospitalization)
  Sender: FDA-Public Use
  Company Number: DE-ABBOTT-07P-062-0374413-00

PATIENT
  Sex: Male
  Weight: 84 kg

DRUGS (1)
  1. ZEMPLAR [Suspect]
     Indication: HYPERPARATHYROIDISM SECONDARY
     Route: 042
     Dates: start: 20070203, end: 20070623

REACTIONS (2)
  - PSEUDOMONAS INFECTION [None]
  - SEPSIS [None]
